FAERS Safety Report 5902985-0 (Version None)
Quarter: 2008Q3

REPORT INFORMATION
  Report Type: 
  Country: None (occurrence: None)
  Receive Date: 20080930
  Receipt Date: 20080728
  Transmission Date: 20090109
  Serious: No
  Sender: FDA-Public Use
  Company Number: US-BAYER-200829927NA

PATIENT
  Age: 30 Year
  Sex: Female

DRUGS (2)
  1. MIRENA [Suspect]
     Indication: CONTRACEPTION
     Route: 015
  2. PLAN B [Suspect]
     Indication: CONTRACEPTION
     Route: 048
     Dates: start: 20080609, end: 20080610

REACTIONS (9)
  - ABDOMINAL PAIN [None]
  - ALOPECIA [None]
  - DYSPNOEA [None]
  - GENITAL HAEMORRHAGE [None]
  - HEADACHE [None]
  - MOOD SWINGS [None]
  - PAIN IN EXTREMITY [None]
  - PALPITATIONS [None]
  - TREMOR [None]
